FAERS Safety Report 5347355-1 (Version None)
Quarter: 2007Q2

REPORT INFORMATION
  Report Type: 
  Country: None (occurrence: None)
  Receive Date: 20070507
  Receipt Date: 20070201
  Transmission Date: 20071010
  Serious: Yes (Hospitalization, Other)
  Sender: FDA-Public Use
  Company Number: 34113

PATIENT
  Age: 38 Year
  Sex: Male
  Weight: 66 kg

DRUGS (3)
  1. ADRIAMYCIN PFS [Suspect]
     Indication: HODGKIN'S DISEASE
  2. FERROSANOL DUODENAL (FERROGYCINE SULFATE COMPLEX) [Concomitant]
  3. ESOMEPRAZOLE MAGNESIUM [Concomitant]

REACTIONS (1)
  - PULMONARY TOXICITY [None]
